FAERS Safety Report 9014187 (Version 2)
Quarter: 2013Q2

REPORT INFORMATION
  Report Type: Spontaneous
  Country: SI (occurrence: SI)
  Receive Date: 20130115
  Receipt Date: 20130508
  Transmission Date: 20140414
  Serious: Yes (Hospitalization, Other)
  Sender: FDA-Public Use
  Company Number: PHHY2013SI002554

PATIENT
  Age: 79 Year
  Sex: Female

DRUGS (7)
  1. METHOTREXATE [Suspect]
     Indication: RHEUMATOID ARTHRITIS
     Dosage: 7.5 - 10 MG ONCE A WEEK
     Dates: start: 1998
  2. FOLIC ACID [Concomitant]
     Dosage: 5 MG
  3. ASASANTIN [Concomitant]
  4. NIFEDIPINE [Concomitant]
  5. ESCITALOPRAM [Concomitant]
  6. REPAGLINIDE [Concomitant]
  7. BISOPROLOL [Concomitant]

REACTIONS (14)
  - Gingival bleeding [Recovered/Resolved]
  - Haematoma [Recovered/Resolved]
  - Erythropoiesis abnormal [Unknown]
  - Megakaryocytes decreased [Unknown]
  - Pancytopenia [Recovered/Resolved]
  - Pyrexia [Recovered/Resolved]
  - Fatigue [Recovered/Resolved]
  - Petechiae [Recovered/Resolved]
  - Neutropenia [Recovered/Resolved]
  - Pain [Recovered/Resolved]
  - Arthralgia [Recovered/Resolved]
  - Cerebrovascular accident [Unknown]
  - Hemiparesis [Unknown]
  - Cystitis [Unknown]
